FAERS Safety Report 11660340 (Version 1)
Quarter: 2015Q4

REPORT INFORMATION
  Report Type: Spontaneous
  Country: US (occurrence: None)
  Receive Date: 20151023
  Receipt Date: 20151023
  Transmission Date: 20160304
  Serious: Yes (Hospitalization)
  Sender: FDA-Public Use
  Company Number: None

PATIENT
  Age: 49 Year
  Sex: Female
  Weight: 47.63 kg

DRUGS (2)
  1. DIAZEPAM. [Suspect]
     Active Substance: DIAZEPAM
     Indication: NEUROGENIC BLADDER
     Route: 048
     Dates: start: 20150506, end: 20150618
  2. BUPIVACAINE [Suspect]
     Active Substance: BUPIVACAINE
     Indication: NEUROGENIC BLADDER
     Dates: start: 20150617, end: 20150619

REACTIONS (8)
  - Mental status changes [None]
  - Motor dysfunction [None]
  - Toxicity to various agents [None]
  - Unresponsive to stimuli [None]
  - Multiple sclerosis [None]
  - Sedation [None]
  - Overdose [None]
  - Conversion disorder [None]

NARRATIVE: CASE EVENT DATE: 20150619
